FAERS Safety Report 4885362-3 (Version None)
Quarter: 2005Q4

REPORT INFORMATION
  Report Type: 
  Country: None (occurrence: None)
  Receive Date: 20051221
  Receipt Date: 20051003
  Transmission Date: 20060501
  Serious: Yes (Hospitalization)
  Sender: FDA-Public Use
  Company Number: US-YAMANOUCHI-YPA20050504

PATIENT
  Age: 94 Year
  Sex: Male

DRUGS (1)
  1. VESICARE [Suspect]
     Dates: start: 20050601

REACTIONS (1)
  - URINARY RETENTION [None]
